FAERS Safety Report 8243964-0 (Version None)
Quarter: 2012Q1

REPORT INFORMATION
  Report Type: 
  Country: None (occurrence: None)
  Receive Date: 20120329
  Receipt Date: 20111114
  Transmission Date: 20120608
  Serious: No
  Sender: FDA-Public Use
  Company Number: US-MYLANLABS-2011S1021080

PATIENT
  Age: 58 Year
  Sex: Female

DRUGS (4)
  1. ESTRADIOL [Suspect]
     Indication: HORMONE THERAPY
     Dosage: QW
     Route: 062
     Dates: start: 20111004, end: 20111006
  2. ESTRADIOL [Suspect]
     Dosage: QW
     Route: 062
     Dates: start: 20111007, end: 20111007
  3. LISINOPRIL [Concomitant]
     Indication: BLOOD PRESSURE INCREASED
  4. MOTRIN [Concomitant]
     Indication: FIBROMYALGIA

REACTIONS (3)
  - INCORRECT DOSE ADMINISTERED [None]
  - DRUG INEFFECTIVE [None]
  - MENOPAUSAL SYMPTOMS [None]
